FAERS Safety Report 5372732-2 (Version None)
Quarter: 2007Q2

REPORT INFORMATION
  Report Type: 
  Country: None (occurrence: None)
  Receive Date: 20070626
  Receipt Date: 20070615
  Transmission Date: 20071010
  Serious: Yes (Hospitalization, Other)
  Sender: FDA-Public Use
  Company Number: 2006BI06698

PATIENT
  Age: 56 Year
  Sex: Female

DRUGS (4)
  1. AVONEX [Suspect]
     Indication: RELAPSING-REMITTING MULTIPLE SCLEROSIS
     Dosage: 30 MG;QW;IM
     Route: 030
     Dates: start: 20061104, end: 20070127
  2. CITALOPRAM HYDROBROMIDE [Concomitant]
  3. LORAZEPAM [Concomitant]
  4. MULTI-VITAMIN [Concomitant]

REACTIONS (1)
  - BRAIN NEOPLASM MALIGNANT [None]
